FAERS Safety Report 8186463 (Version 2)
Quarter: 2012Q4

REPORT INFORMATION
  Report Type: 
  Country: US (occurrence: US)
  Receive Date: 20111018
  Receipt Date: 20121003
  Transmission Date: 20130627
  Serious: Yes (Other)
  Sender: FDA-Public Use
  Company Number: US-US-EMD SERONO, INC.-7089267

PATIENT
  Age: 52 None
  Sex: Female
  Weight: 91 kg

DRUGS (3)
  1. REBIF [Suspect]
     Indication: MULTIPLE SCLEROSIS
     Route: 058
     Dates: start: 20090412, end: 201108
  2. BACLOFEN [Concomitant]
     Indication: MUSCLE SPASTICITY
  3. UNSPECIFIED MEDICATIONS [Concomitant]
     Indication: MULTIPLE SCLEROSIS

REACTIONS (3)
  - Diverticulitis [Recovering/Resolving]
  - Tooth abscess [Recovered/Resolved]
  - Gastritis [Recovering/Resolving]
